FAERS Safety Report 6540390-7 (Version None)
Quarter: 2010Q1

REPORT INFORMATION
  Report Type: 
  Country: None (occurrence: None)
  Receive Date: 20100113
  Receipt Date: 20100104
  Transmission Date: 20100710
  Serious: Yes (Death)
  Sender: FDA-Public Use
  Company Number: RENA-1000587

PATIENT
  Age: 84 Year
  Sex: Male

DRUGS (1)
  1. RENVELA [Suspect]
     Indication: HYPERPHOSPHATAEMIA
     Dosage: 0.8 G, TID, ORAL
     Route: 048
     Dates: start: 20090527, end: 20090818

REACTIONS (2)
  - CARDIAC ARREST [None]
  - REFUSAL OF TREATMENT BY PATIENT [None]
